FAERS Safety Report 9064257 (Version 1)
Quarter: 2013Q1

REPORT INFORMATION
  Report Type: Report from Study
  Country: US (occurrence: US)
  Receive Date: 20130131
  Receipt Date: 20130131
  Transmission Date: 20140127
  Serious: No
  Sender: FDA-Public Use
  Company Number: US-ABBOTT-12P-163-1002737-00

PATIENT
  Age: 55 None
  Sex: Female

DRUGS (8)
  1. HUMIRA [Suspect]
     Indication: PSORIATIC ARTHROPATHY
     Dates: start: 20120731
  2. HUMIRA [Suspect]
     Indication: PSORIASIS
  3. SPIRONOLACTONE [Concomitant]
     Indication: HYPERTENSION
  4. OXYBUTYNIN [Concomitant]
     Indication: BLADDER SPASM
  5. MIRAPEX [Concomitant]
     Indication: RESTLESS LEGS SYNDROME
  6. AMITRIPTYLINE [Concomitant]
     Indication: HEADACHE
  7. PRAVASTATIN [Concomitant]
     Indication: BLOOD CHOLESTEROL INCREASED
  8. MULTIVITAMIN [Concomitant]
     Indication: VITAMIN SUPPLEMENTATION

REACTIONS (5)
  - Tooth abscess [Not Recovered/Not Resolved]
  - Rash [Not Recovered/Not Resolved]
  - Psoriasis [Not Recovered/Not Resolved]
  - Psoriasis [Not Recovered/Not Resolved]
  - Infectious disease carrier [Unknown]
